FAERS Safety Report 5153423-X (Version None)
Quarter: 2006Q4

REPORT INFORMATION
  Report Type: 
  Country: None (occurrence: None)
  Receive Date: 20061109
  Receipt Date: 20061031
  Transmission Date: 20070319
  Serious: Yes (Life-Threatening)
  Sender: FDA-Public Use
  Company Number: 2006-149762-NL

PATIENT
  Age: 36 Year
  Sex: Male

DRUGS (5)
  1. VECURONIUM BROMIDE [Suspect]
     Indication: HYPOTONIA
  2. SEVOFLURANE [Suspect]
     Indication: INDUCTION AND MAINTENANCE OF ANAESTHESIA
  3. THIOPENTAL SODIUM [Suspect]
     Indication: INDUCTION OF ANAESTHESIA
  4. FENTANYL [Suspect]
     Indication: INDUCTION OF ANAESTHESIA
  5. NITROUS OXIDE W/ OXYGEN [Suspect]
     Indication: MAINTENANCE OF ANAESTHESIA

REACTIONS (6)
  - ATRIOVENTRICULAR BLOCK SECOND DEGREE [None]
  - ATRIOVENTRICULAR BLOCK THIRD DEGREE [None]
  - BLOOD PRESSURE DECREASED [None]
  - BRADYCARDIA [None]
  - BRUGADA SYNDROME [None]
  - ELECTROCARDIOGRAM ST SEGMENT ELEVATION [None]
